FAERS Safety Report 9861316 (Version 2)
Quarter: 2014Q1

REPORT INFORMATION
  Report Type: Spontaneous
  Country: US (occurrence: US)
  Receive Date: 20140202
  Receipt Date: 20140202
  Transmission Date: 20141002
  Serious: No
  Sender: FDA-Public Use
  Company Number: US-ALLERGAN-1304675US

PATIENT
  Age: 58 Year
  Sex: Female

DRUGS (5)
  1. BOTOX [Suspect]
     Indication: SKIN WRINKLING
     Dosage: 155 UNITS, SINGLE
     Route: 030
     Dates: start: 20130320, end: 20130320
  2. BOTOX [Suspect]
     Indication: SKIN WRINKLING
  3. BOTOX [Suspect]
     Indication: SKIN WRINKLING
  4. BOTOX [Suspect]
     Indication: SKIN WRINKLING
  5. GENERIC IMITREX [Concomitant]
     Indication: MIGRAINE
     Dosage: UNK, PRN
     Route: 048

REACTIONS (3)
  - Dysphonia [Recovering/Resolving]
  - Influenza like illness [Recovering/Resolving]
  - Eye swelling [Recovered/Resolved]
